FAERS Safety Report 21674818 (Version 1)
Quarter: 2022Q4

REPORT INFORMATION
  Report Type: Spontaneous
  Country: US (occurrence: None)
  Receive Date: 20221201
  Receipt Date: 20221201
  Transmission Date: 20230113
  Serious: No
  Sender: FDA-Public Use
  Company Number: None

PATIENT
  Age: 65 Year
  Sex: Female

DRUGS (1)
  1. ENBREL [Suspect]
     Active Substance: ETANERCEPT
     Indication: Rheumatoid arthritis
     Dosage: INJECT 50MG SUBCUTANEOUSLY ONCE WEEKLY  USING THE AUTO TOUCH DEVICE AS DIRECTED??DATE OF USE: ON HO
     Route: 058
     Dates: start: 202210

REACTIONS (3)
  - Influenza [None]
  - Herpes zoster [None]
  - Pneumonia [None]
